FAERS Safety Report 5953910-8 (Version None)
Quarter: 2008Q4

REPORT INFORMATION
  Report Type: 
  Country: None (occurrence: None)
  Receive Date: 20081114
  Receipt Date: 20081105
  Transmission Date: 20090506
  Serious: Yes (Hospitalization)
  Sender: FDA-Public Use
  Company Number: PHHO2006PL20595

PATIENT
  Sex: Female
  Weight: 60 kg

DRUGS (3)
  1. GLEEVEC [Suspect]
     Indication: CHRONIC MYELOID LEUKAEMIA
     Dosage: 800 MG, QD
     Route: 048
     Dates: start: 20061128, end: 20061223
  2. GLEEVEC [Suspect]
     Dosage: NO TREATMENT
     Dates: start: 20061224, end: 20070122
  3. GLEEVEC [Suspect]
     Dosage: UNK
     Route: 048
     Dates: start: 20070124

REACTIONS (11)
  - ACUTE TONSILLITIS [None]
  - CARDIAC DISCOMFORT [None]
  - DYSPNOEA [None]
  - ELECTROCARDIOGRAM T WAVE ABNORMAL [None]
  - FEBRILE NEUTROPENIA [None]
  - GRANULOCYTOPENIA [None]
  - MYALGIA [None]
  - PANCYTOPENIA [None]
  - PLATELET COUNT DECREASED [None]
  - PYREXIA [None]
  - WHITE BLOOD CELL COUNT DECREASED [None]
